FAERS Safety Report 7942980-3 (Version None)
Quarter: 2011Q4

REPORT INFORMATION
  Report Type: 
  Country: None (occurrence: None)
  Receive Date: 20111128
  Receipt Date: 20111118
  Transmission Date: 20120403
  Serious: Yes (Death, Hospitalization)
  Sender: FDA-Public Use
  Company Number: US-EISAI INC-E7272-00104-CLI-US

PATIENT
  Sex: Male

DRUGS (18)
  1. CYCLOBENZAPRINE [Concomitant]
     Route: 048
     Dates: start: 20090101, end: 20110621
  2. DILTIAZEM HCL [Concomitant]
     Indication: HYPERTENSION
     Route: 048
     Dates: start: 20090401
  3. DILTIAZEM HCL [Concomitant]
     Indication: CARDIAC DISORDER
  4. ONTAK [Suspect]
     Route: 041
     Dates: start: 20110329
  5. COUMADIN [Concomitant]
     Indication: ANTICOAGULANT THERAPY
     Route: 048
     Dates: start: 20090401
  6. CLOBETASOL PROPIONATE [Concomitant]
     Indication: ECZEMA
     Route: 061
     Dates: start: 20090101
  7. SODIUM CHLORIDE [Concomitant]
     Route: 042
     Dates: start: 20110510, end: 20110614
  8. POTASSIUM ACETATE [Concomitant]
     Indication: HYPOKALAEMIA
     Route: 048
     Dates: start: 20090401
  9. METOPROLOL TARTRATE [Concomitant]
     Indication: HYPERTENSION
     Route: 048
     Dates: start: 19960101
  10. MULTI-VITAMINS [Concomitant]
     Indication: VITAMIN SUPPLEMENTATION
     Route: 048
     Dates: start: 20010101
  11. MULTI-VITAMINS [Concomitant]
     Indication: FATIGUE
  12. LORATADINE [Concomitant]
     Indication: PREMEDICATION
     Route: 048
     Dates: start: 20110329
  13. OSTEO BI-FLEX [Concomitant]
     Indication: OSTEOARTHRITIS
     Route: 048
     Dates: start: 20080101
  14. DOCUSATE SODIUM [Concomitant]
     Indication: CONSTIPATION
     Route: 048
     Dates: start: 20101201
  15. SODIUM CHLORIDE [Concomitant]
  16. ACETAMINOPHEN [Concomitant]
     Indication: PREMEDICATION
     Route: 048
     Dates: start: 20110329
  17. FUROSEMIDE [Concomitant]
     Indication: HYPERTENSION
     Route: 048
     Dates: start: 20090401
  18. FUROSEMIDE [Concomitant]

REACTIONS (2)
  - CELLULITIS [None]
  - MENTAL STATUS CHANGES [None]
